FAERS Safety Report 6923371-0 (Version None)
Quarter: 2010Q3

REPORT INFORMATION
  Report Type: 
  Country: None (occurrence: None)
  Receive Date: 20100813
  Receipt Date: 20100811
  Transmission Date: 20110219
  Serious: Yes (Hospitalization)
  Sender: FDA-Public Use
  Company Number: ES-MERCK-1008ESP00009

PATIENT
  Age: 87 Year
  Sex: Female

DRUGS (1)
  1. INVANZ [Suspect]
     Indication: URINARY TRACT INFECTION
     Route: 065
     Dates: start: 20100727, end: 20100803

REACTIONS (4)
  - CONFUSIONAL STATE [None]
  - HALLUCINATION [None]
  - MUSCULAR WEAKNESS [None]
  - TREMOR [None]
